FAERS Safety Report 6564392-X (Version None)
Quarter: 2010Q1

REPORT INFORMATION
  Report Type: 
  Country: None (occurrence: None)
  Receive Date: 20100201
  Receipt Date: 20100122
  Transmission Date: 20100710
  Serious: No
  Sender: FDA-Public Use
  Company Number: US-B.I. PHARMACEUTICALS,INC./RIDGEFIELD-2010-BP-00854BP

PATIENT
  Age: 77 Year
  Sex: Male
  Weight: 81.65 kg

DRUGS (8)
  1. FLOMAX [Suspect]
  2. COLD REMEDY GEL SWABS [Suspect]
     Dates: start: 20091214, end: 20091217
  3. NIASPAN [Concomitant]
  4. LIPITOR [Concomitant]
  5. NEXIUM [Concomitant]
  6. ATENOLOL [Concomitant]
  7. PLAVIX [Concomitant]
  8. ASPIRIN [Concomitant]

REACTIONS (1)
  - ANOSMIA [None]
